FAERS Safety Report 13513197 (Version 1)
Quarter: 2017Q2

REPORT INFORMATION
  Report Type: Spontaneous
  Country: FI (occurrence: FI)
  Receive Date: 20170504
  Receipt Date: 20170504
  Transmission Date: 20170830
  Serious: Yes (Hospitalization)
  Sender: FDA-Public Use
  Company Number: FI-ABBVIE-16P-055-1804558-00

PATIENT
  Age: 45 Year
  Sex: Male

DRUGS (31)
  1. MAGNESIUM [Concomitant]
     Active Substance: MAGNESIUM
     Indication: PRODUCT USED FOR UNKNOWN INDICATION
  2. OPAMOX [Concomitant]
     Active Substance: OXAZEPAM
     Indication: INSOMNIA
     Dosage: 1 AT NIGHT WHEN NEEDED
  3. CIRCADIN [Concomitant]
     Active Substance: MELATONIN
     Indication: SLEEP DISORDER
     Dosage: WHEN NEEDED
     Route: 048
     Dates: start: 20160629
  4. PANACOD [Concomitant]
     Active Substance: ACETAMINOPHEN\CODEINE PHOSPHATE
     Indication: PAIN
     Dosage: 500/30: 1-2 SOLUBLE TABLETS; 1-4 TIMES PER DAY WHEN NEEDED
     Route: 048
     Dates: start: 20141003
  5. PRONAXEN [Concomitant]
     Active Substance: NAPROXEN
     Indication: PRODUCT USED FOR UNKNOWN INDICATION
     Route: 048
     Dates: start: 20151228
  6. TOLVON [Concomitant]
     Active Substance: MIANSERIN
     Indication: INSOMNIA
     Dosage: 1 AT NIGHT
  7. ATRODUAL [Concomitant]
     Indication: OBSTRUCTION
     Dosage: 0.5/2.5 MG, 1 NEBULIZATION 3-4 TIMES DAILY AS NEE4DED
  8. AZONA [Concomitant]
     Indication: INSOMNIA
     Dosage: 1 CAPSULE AT NIGHT AS NEEDED
  9. FURESIS [Concomitant]
     Active Substance: FUROSEMIDE
     Indication: FLUID RETENTION
     Route: 048
     Dates: start: 20101019
  10. AMORION [Concomitant]
     Indication: ENDOCARDITIS PROPHYLAXIS
     Dosage: WHEN NEEDED; 4 TABLETS ONE HOUR BEFORE PROCEDURE
     Route: 048
     Dates: start: 20150120
  11. TEMESTA [Concomitant]
     Active Substance: LORAZEPAM
     Indication: ANXIETY
     Dosage: 1 AT 6 PM
  12. TEMESTA [Concomitant]
     Active Substance: LORAZEPAM
     Indication: SLEEP DISORDER
  13. CIRCADIN [Concomitant]
     Active Substance: MELATONIN
     Indication: INSOMNIA
     Route: 048
     Dates: start: 20160707
  14. PANADOL FORTE [Concomitant]
     Active Substance: ACETAMINOPHEN\CAFFEINE
     Indication: PAIN
     Dosage: 1-3 TIMES PER DAY WHEN NEEDED
     Route: 048
     Dates: start: 20140917
  15. VENOFER [Concomitant]
     Active Substance: IRON SUCROSE
     Indication: IRON DEFICIENCY
     Dosage: 20 MG/ML-100 MG WEEKLY
     Route: 042
  16. VIEKIRAX [Suspect]
     Active Substance: OMBITASVIR\PARITAPREVIR\RITONAVIR
     Indication: HEPATITIS C
     Dosage: 2 TABLETS IN THE MORNNG
     Route: 048
     Dates: start: 20160506, end: 20160729
  17. EXVIERA [Suspect]
     Active Substance: DASABUVIR
     Indication: HEPATITIS C
     Dosage: 1 TABLET IN AM AND 1 TABLET IN PM
     Route: 048
     Dates: start: 20160506, end: 20160729
  18. LAMISIL [Concomitant]
     Active Substance: TERBINAFINE HYDROCHLORIDE
     Indication: TINEA PEDIS
     Dosage: WHEN NEEDED
     Route: 061
     Dates: start: 20150813
  19. THYROXIN [Concomitant]
     Active Substance: LEVOTHYROXINE
     Indication: HYPOTHYROIDISM
  20. RENAVIT [Concomitant]
     Indication: VITAMIN SUPPLEMENTATION
     Dosage: 1 TABLET IN THE EVENINGS AFTER DIALYSIS
  21. INNOHEP [Concomitant]
     Active Substance: TINZAPARIN SODIUM
     Indication: ANTICOAGULANT THERAPY
     Dosage: 7000 IU, 4500 IU + 2500 IU AT BEGINNING OF DIALYSIS
     Route: 042
  22. ARANESP [Concomitant]
     Active Substance: DARBEPOETIN ALFA
     Indication: ANAEMIA
     Dosage: 60MCG EVERY 10TH DAY
     Route: 058
  23. XYLOCAINE [Concomitant]
     Active Substance: LIDOCAINE HYDROCHLORIDE
     Indication: LOCAL ANAESTHESIA
     Dates: start: 20160614
  24. CARDACE [Concomitant]
     Active Substance: RAMIPRIL
     Indication: CARDIAC FAILURE
     Dates: start: 20150423
  25. EMCONCOR [Concomitant]
     Active Substance: BISOPROLOL FUMARATE
     Indication: CARDIAC FAILURE
     Route: 048
     Dates: start: 20150818
  26. RENAVIT [Concomitant]
     Indication: DIALYSIS
  27. DAKTARIN [Concomitant]
     Active Substance: MICONAZOLE NITRATE
     Indication: TINEA PEDIS
     Dosage: 1-2 TIMES PER DAY, WHEN NEEDED
     Route: 061
     Dates: start: 20160225
  28. HIRUDOID FORTE [Concomitant]
     Indication: THROMBOSIS
     Dosage: 3-5 CM CREAM THREE TIMES
     Route: 061
     Dates: start: 20130712
  29. BURANA [Concomitant]
     Active Substance: IBUPROFEN
     Indication: PAIN
     Dosage: 1-3 TIMES PER DAY
     Route: 048
     Dates: start: 20140917
  30. DECUBAL [Concomitant]
     Indication: PRODUCT USED FOR UNKNOWN INDICATION
     Dosage: 1-2 TIMES PER DAY FOR TREATMENT OF THE SKIN OF THE FEET WHEN NEEDED
     Route: 061
     Dates: start: 20160108
  31. CALCICHEW [Concomitant]
     Active Substance: CALCIUM CARBONATE
     Indication: PRODUCT USED FOR UNKNOWN INDICATION

REACTIONS (6)
  - Renal failure [Not Recovered/Not Resolved]
  - Osteomyelitis [Unknown]
  - Calcium deficiency [Unknown]
  - Insomnia [Unknown]
  - Diarrhoea [Unknown]
  - Pneumonia [Unknown]

NARRATIVE: CASE EVENT DATE: 20161220
